FAERS Safety Report 6089226 (Version 2)
Quarter: 2013Q2

REPORT INFORMATION
  Report Type: Spontaneous
  Country: US (occurrence: US)
  Receive Date: 20060724
  Receipt Date: 20130508
  Transmission Date: 20140414
  Serious: Yes (Other)
  Sender: FDA-Public Use
  Company Number: PHEH2006US08972

PATIENT
  Age: 58 Year
  Sex: Female

DRUGS (11)
  1. ZOMETA [Suspect]
     Indication: METASTASES TO BONE
     Dosage: MONTHLY
     Dates: start: 20020808, end: 20060712
  2. LAPATINIB [Suspect]
  3. XELODA [Suspect]
  4. CEFTIN [Concomitant]
  5. TAXOTERE [Concomitant]
     Indication: BREAST CANCER METASTATIC
     Dosage: 60 MG EVERY OTHER WEEK
     Dates: start: 20050512
  6. HERCEPTIN [Concomitant]
     Indication: BREAST CANCER METASTATIC
  7. ADRIAMYCIN [Concomitant]
     Dosage: 106 MG, 4 TREATMENTS
     Dates: start: 19990408, end: 19990708
  8. ADRIAMYCIN [Concomitant]
     Dosage: 18 MG EVERY WEEK
     Dates: start: 20030211, end: 20050421
  9. FEMARA [Concomitant]
     Dosage: 2.5 MG, QD
     Dates: start: 20010806, end: 20030515
  10. ARIMIDEX [Concomitant]
     Dosage: 1 MG, QD
     Dates: start: 20030522, end: 20031002
  11. FASLODEX [Concomitant]
     Dosage: 250 MG MONTHLY
     Dates: start: 20030910, end: 20040311

REACTIONS (23)
  - Osteonecrosis of jaw [Unknown]
  - Oral discomfort [Unknown]
  - Impaired healing [Unknown]
  - Hypophagia [Unknown]
  - Wound [Unknown]
  - Tooth injury [Not Recovered/Not Resolved]
  - Teeth brittle [Unknown]
  - Diarrhoea [Unknown]
  - Musculoskeletal pain [Unknown]
  - Fatigue [Unknown]
  - Pyrexia [Recovered/Resolved]
  - Flushing [Not Recovered/Not Resolved]
  - Alopecia [Unknown]
  - Pallor [Unknown]
  - White blood cell count increased [Unknown]
  - Malaise [Unknown]
  - Anaemia [Unknown]
  - Dyspareunia [Unknown]
  - Pharyngitis [Unknown]
  - Sinusitis [Unknown]
  - Oropharyngeal pain [Recovered/Resolved]
  - Erythema [Unknown]
  - Upper respiratory tract infection [Unknown]
